FAERS Safety Report 9204895 (Version 1)
Quarter: 2013Q2

REPORT INFORMATION
  Report Type: Spontaneous
  Country: US (occurrence: US)
  Receive Date: 20130402
  Receipt Date: 20130402
  Transmission Date: 20140414
  Serious: Yes (Other)
  Sender: FDA-Public Use
  Company Number: CHPA2013US005397

PATIENT
  Age: 79 Year
  Sex: Male

DRUGS (5)
  1. MAALOX ANTACID/ANTIGAS MAX LIQ [Suspect]
     Indication: GASTRIC ULCER
     Dosage: UNK DF, PRN
     Route: 048
     Dates: start: 1975
  2. MAALOX ANTACID/ANTIGAS MAX LIQ [Suspect]
     Indication: ABDOMINAL DISCOMFORT
  3. MAALOX ANTACID [Suspect]
     Indication: GASTRIC ULCER
     Dosage: 1 OR 2 DF, PRN
     Route: 048
     Dates: start: 1975
  4. MAALOX ANTACID [Suspect]
     Indication: ABDOMINAL DISCOMFORT
  5. PEPTO-BISMOL [Concomitant]

REACTIONS (4)
  - Vascular occlusion [Recovered/Resolved]
  - Off label use [Unknown]
  - Therapeutic response unexpected [Unknown]
  - Cardiac disorder [None]
